FAERS Safety Report 26115158 (Version 1)
Quarter: 2025Q4

REPORT INFORMATION
  Report Type: Spontaneous
  Country: US (occurrence: US)
  Receive Date: 20251203
  Receipt Date: 20251203
  Transmission Date: 20260118
  Serious: Yes (Other)
  Sender: ABON PHARMACEUTICALS LLC
  Company Number: US-ABP-000081

PATIENT
  Age: 75 Year
  Sex: Male

DRUGS (1)
  1. VANCOMYCIN [Suspect]
     Active Substance: VANCOMYCIN
     Indication: Arthritis infective
     Route: 065

REACTIONS (1)
  - Autoimmune haemolytic anaemia [Recovered/Resolved]
